FAERS Safety Report 9214756 (Version 1)
Quarter: 2013Q2

REPORT INFORMATION
  Report Type: Report from Study
  Country: CA (occurrence: CA)
  Receive Date: 20130405
  Receipt Date: 20130405
  Transmission Date: 20140414
  Serious: Yes (Other)
  Sender: FDA-Public Use
  Company Number: CA-JNJFOC-20130317876

PATIENT
  Age: 30 Year
  Sex: Female
  Weight: 75 kg

DRUGS (2)
  1. REMICADE [Suspect]
     Indication: CROHN^S DISEASE
     Route: 042
     Dates: start: 20100410
  2. METHOTREXATE [Concomitant]
     Dosage: ONCE IN 2-3 WEEKS
     Route: 058

REACTIONS (4)
  - Renal pain [Not Recovered/Not Resolved]
  - Dysuria [Not Recovered/Not Resolved]
  - Crohn^s disease [Unknown]
  - Eczema [Unknown]
